FAERS Safety Report 8611009 (Version 2)
Quarter: 2012Q4

REPORT INFORMATION
  Report Type: 
  Country: PE (occurrence: PE)
  Receive Date: 20120612
  Receipt Date: 20121016
  Transmission Date: 20130627
  Serious: Yes (Other)
  Sender: FDA-Public Use
  Company Number: PE-JNJFOC-20120602014

PATIENT
  Age: 41 Year
  Sex: Female

DRUGS (4)
  1. REMICADE [Suspect]
     Indication: RHEUMATOID ARTHRITIS
     Route: 042
     Dates: start: 20100813
  2. REMICADE [Suspect]
     Indication: RHEUMATOID ARTHRITIS
     Dosage: 10th administration of infliximab
     Route: 042
     Dates: start: 20120525
  3. CORTICOSTEROID [Concomitant]
     Route: 065
  4. LORATADINE [Concomitant]
     Route: 065

REACTIONS (5)
  - Reproductive tract disorder [Unknown]
  - Respiratory distress [Recovered/Resolved]
  - Pruritus [Recovered/Resolved]
  - Surgery [Unknown]
  - Rash [Recovered/Resolved]
